FAERS Safety Report 9791785 (Version 1)
Quarter: 2014Q1

REPORT INFORMATION
  Report Type: Spontaneous
  Country: FR (occurrence: FR)
  Receive Date: 20140102
  Receipt Date: 20140102
  Transmission Date: 20141002
  Serious: Yes (Hospitalization, Disabling)
  Sender: FDA-Public Use
  Company Number: FR-JNJFOC-20131215924

PATIENT
  Age: 15 Year
  Sex: Female

DRUGS (2)
  1. TRIAFEMI [Suspect]
     Indication: CONTRACEPTION
     Route: 048
     Dates: start: 201208, end: 20130215
  2. ISOTRETINOIN [Suspect]
     Indication: ACNE
     Route: 065
     Dates: end: 20130215

REACTIONS (1)
  - Ischaemic stroke [Recovered/Resolved with Sequelae]
